FAERS Safety Report 4973454-X (Version None)
Quarter: 2006Q2

REPORT INFORMATION
  Report Type: 
  Country: None (occurrence: None)
  Receive Date: 20060407
  Receipt Date: 20060328
  Transmission Date: 20061013
  Serious: Yes (Other)
  Sender: FDA-Public Use
  Company Number: 2006031939

PATIENT
  Age: 50 Year
  Sex: Male

DRUGS (1)
  1. XALATAN [Suspect]
     Indication: ILL-DEFINED DISORDER
     Dosage: 1 DROP (1 IN 1 D), INTRAOCULAR
     Route: 031

REACTIONS (2)
  - IRIDOCYCLITIS [None]
  - IRIS ADHESIONS [None]
